FAERS Safety Report 8566543 (Version 3)
Quarter: 2013Q1

REPORT INFORMATION
  Report Type: Spontaneous
  Country: BR (occurrence: BR)
  Receive Date: 20120517
  Receipt Date: 20130329
  Transmission Date: 20140127
  Serious: Yes (Other)
  Sender: FDA-Public Use
  Company Number: PHHY2011BR48711

PATIENT
  Age: 75 Year
  Sex: Female
  Weight: 90 kg

DRUGS (14)
  1. FORASEQ [Suspect]
     Dosage: UNK
  2. HYDERGINE SRO [Suspect]
     Indication: DEPRESSION
     Dosage: 1 DF, DAILY
     Route: 048
  3. HYDERGINE SRO [Suspect]
     Dosage: 1 DF, (ONE TABLET IN MORNING AND ONE TABLET AT NIGHT)
     Route: 048
  4. HYDERGINE SRO [Suspect]
     Dosage: 1 DF, UNK (ONE TABLET IN MORNING)
     Route: 048
  5. OLCADIL [Suspect]
     Indication: CORONARY ARTERY DISEASE
     Dosage: 1 DF, DAILY
     Route: 048
  6. OLCADIL [Suspect]
     Dosage: 2 DF, DAY
     Dates: start: 2011
  7. ISKEMIL [Suspect]
     Dosage: 1 DF, DAY
     Dates: start: 2012
  8. ESQUEMIL [Concomitant]
  9. HARPADOL [Concomitant]
     Dosage: 400 MG,(ONE TABLET 12/12 HOURS)
     Route: 048
  10. SOMALGIN [Concomitant]
     Indication: THROMBOSIS
     Dosage: 100 MG,(ONE TABLET AFTER LUNCH)
     Route: 048
  11. VICOG [Concomitant]
     Dosage: 3 DF DAY, (AT A DOSE OF ONE TABLET AT BREAKFAST, ONE TABLET AT LUNCH AND ONE TABLET AT DINNER)
     Route: 048
  12. HARPAGOPHYTUM PROCUMBENS [Concomitant]
     Indication: PAIN
     Dosage: 1 DF, (12/12 HR)
     Route: 048
  13. HYDERGINE [Concomitant]
     Dosage: 1 DF, DAY
     Route: 048
  14. HYDERGINE [Concomitant]
     Dosage: 3 DF, DAY

REACTIONS (14)
  - Scoliosis [Not Recovered/Not Resolved]
  - Osteoporosis [Not Recovered/Not Resolved]
  - Blood pressure increased [Recovered/Resolved]
  - Fall [Recovered/Resolved]
  - Head discomfort [Recovered/Resolved]
  - Neck pain [Not Recovered/Not Resolved]
  - Hypokinesia [Recovered/Resolved]
  - Local swelling [Recovered/Resolved]
  - Depression [Not Recovered/Not Resolved]
  - Nervousness [Not Recovered/Not Resolved]
  - Balance disorder [Recovering/Resolving]
  - Memory impairment [Recovered/Resolved]
  - Intentional drug misuse [Unknown]
  - Wrong drug administered [Unknown]
